FAERS Safety Report 8717255 (Version 2)
Quarter: 2012Q4

REPORT INFORMATION
  Report Type: Spontaneous
  Country: US (occurrence: None)
  Receive Date: 20120724
  Receipt Date: 20120820
  Transmission Date: 20130627
  Serious: Yes (Death)
  Sender: FDA-Public Use
  Company Number: 2012P1049669

PATIENT
  Age: 57 Year
  Sex: Female

DRUGS (4)
  1. MORPHINE SULFATE [Suspect]
     Route: 037
     Dates: start: 20061101
  2. MORPHINE SULFATE [Suspect]
     Route: 037
     Dates: start: 20120628, end: 20120703
  3. BUPIVACAINE HYDROCHLORIDE [Suspect]
     Route: 037
     Dates: start: 20071219
  4. BUPIVACAINE HYDROCHLORIDE [Suspect]
     Dates: start: 20120628, end: 20120703

REACTIONS (1)
  - DEATH [None]
